FAERS Safety Report 8597925-2 (Version None)
Quarter: 2012Q3

REPORT INFORMATION
  Report Type: 
  Country: None (occurrence: None)
  Receive Date: 20120816
  Receipt Date: 20120808
  Transmission Date: 20120928
  Serious: Yes (Hospitalization)
  Sender: FDA-Public Use
  Company Number: US-BAYER-2011-075475

PATIENT
  Age: 18 Year
  Sex: Female
  Weight: 90.703 kg

DRUGS (6)
  1. YASMIN [Suspect]
  2. YASMIN [Suspect]
     Indication: PREMENSTRUAL SYNDROME
     Dosage: UNK
     Dates: start: 20080101
  3. TYLENOL [Concomitant]
     Indication: PAIN
     Dosage: 1 PILL
     Dates: start: 20080101
  4. MOTRIN [Concomitant]
     Indication: PAIN
     Dosage: 1 PILL
     Dates: start: 20080101
  5. YAZ [Suspect]
  6. YAZ [Suspect]
     Indication: PREMENSTRUAL SYNDROME
     Dosage: UNK
     Dates: start: 20080101

REACTIONS (3)
  - ANXIETY [None]
  - GALLBLADDER INJURY [None]
  - INJURY [None]
